FAERS Safety Report 16409352 (Version 1)
Quarter: 2019Q2

REPORT INFORMATION
  Report Type: Spontaneous
  Country: US (occurrence: US)
  Receive Date: 20190610
  Receipt Date: 20190610
  Transmission Date: 20190711
  Serious: No
  Sender: FDA-Public Use
  Company Number: US-TEVA-2019-US-1043430

PATIENT
  Age: 7 Decade
  Sex: Male

DRUGS (1)
  1. GABAPENTIN. [Suspect]
     Active Substance: GABAPENTIN
     Indication: NEUROPATHY PERIPHERAL
     Dosage: IN THE MORNING AND NIGHT
     Route: 048

REACTIONS (3)
  - Product use complaint [Unknown]
  - Drug ineffective [Unknown]
  - Weight increased [Unknown]
